FAERS Safety Report 16009773 (Version 1)
Quarter: 2019Q1

REPORT INFORMATION
  Report Type: Spontaneous
  Country: US (occurrence: US)
  Receive Date: 20190227
  Receipt Date: 20190227
  Transmission Date: 20190418
  Serious: No
  Sender: FDA-Public Use
  Company Number: US-SA-2018SA098331

PATIENT
  Age: 82 Year
  Sex: Female

DRUGS (1)
  1. ALLEGRA ALLERGY [Suspect]
     Active Substance: FEXOFENADINE HYDROCHLORIDE
     Indication: RESPIRATORY DISORDER
     Dosage: 180 MG,QD
     Route: 048

REACTIONS (3)
  - Sleep disorder [Unknown]
  - Amnesia [Unknown]
  - Sneezing [Unknown]

NARRATIVE: CASE EVENT DATE: 20180330
